FAERS Safety Report 20489485 (Version 4)
Quarter: 2022Q2

REPORT INFORMATION
  Report Type: Spontaneous
  Country: US (occurrence: US)
  Receive Date: 20220218
  Receipt Date: 20220502
  Transmission Date: 20220720
  Serious: Yes (Other)
  Sender: FDA-Public Use
  Company Number: US-PFIZER INC-202200214910

PATIENT
  Age: 71 Year
  Sex: Female

DRUGS (2)
  1. IBRANCE [Suspect]
     Active Substance: PALBOCICLIB
     Dosage: 125 MG
     Dates: start: 20211215, end: 20220331
  2. IBRANCE [Suspect]
     Active Substance: PALBOCICLIB
     Dosage: 125 MG
     Dates: start: 20220124

REACTIONS (8)
  - Spinal operation [Unknown]
  - Feeling abnormal [Unknown]
  - Fatigue [Unknown]
  - Pruritus [Unknown]
  - Alopecia [Unknown]
  - Nausea [Unknown]
  - Neutrophil count decreased [Unknown]
  - Depression [Unknown]
